FAERS Safety Report 4874473-4 (Version None)
Quarter: 2006Q1

REPORT INFORMATION
  Report Type: 
  Country: None (occurrence: None)
  Receive Date: 20060106
  Receipt Date: 20051228
  Transmission Date: 20060701
  Serious: Yes (Hospitalization)
  Sender: FDA-Public Use
  Company Number: US-ROCHE-430037

PATIENT
  Age: 43 Year
  Sex: Female

DRUGS (5)
  1. CAPECITABINE [Suspect]
     Route: 048
     Dates: start: 20050602, end: 20051209
  2. CAPECITABINE [Suspect]
     Dosage: 50% REDUCTION
     Route: 048
     Dates: start: 20051216
  3. ZOMETA [Concomitant]
     Route: 048
     Dates: start: 19990615
  4. VITAMIN B-12 [Concomitant]
     Route: 048
     Dates: start: 20050715
  5. DULCOLAX [Concomitant]
     Route: 048

REACTIONS (3)
  - ABDOMINAL PAIN [None]
  - BACK PAIN [None]
  - PANCREATITIS [None]
